FAERS Safety Report 14096540 (Version 1)
Quarter: 2017Q4

REPORT INFORMATION
  Report Type: Spontaneous
  Country: JP (occurrence: JP)
  Receive Date: 20171017
  Receipt Date: 20171017
  Transmission Date: 20180321
  Serious: Yes (Congenital Anomaly)
  Sender: FDA-Public Use
  Company Number: JP-UCBSA-2017039997

PATIENT
  Age: 0 Day

DRUGS (2)
  1. FOLIC ACID. [Concomitant]
     Active Substance: FOLIC ACID
     Indication: PRODUCT USED FOR UNKNOWN INDICATION
     Dosage: UNK
     Route: 064
  2. E KEPPRA [Suspect]
     Active Substance: LEVETIRACETAM
     Indication: PRODUCT USED FOR UNKNOWN INDICATION
     Dosage: 1000 MG DAILY
     Route: 064
     Dates: end: 20170929

REACTIONS (2)
  - Foetal exposure during pregnancy [Unknown]
  - Limb reduction defect [Not Recovered/Not Resolved]

NARRATIVE: CASE EVENT DATE: 20170929
